FAERS Safety Report 9414761 (Version 2)
Quarter: 2013Q3

REPORT INFORMATION
  Report Type: Spontaneous
  Country: US (occurrence: None)
  Receive Date: 20130718
  Receipt Date: 20130816
  Transmission Date: 20140515
  Serious: Yes (Life-Threatening)
  Sender: FDA-Public Use
  Company Number: 13MRZ-00002

PATIENT
  Sex: Female

DRUGS (2)
  1. INCOBOTULINUMTOXINA [Suspect]
     Indication: PRODUCT USED FOR UNKNOWN INDICATION
     Dosage: SINGLE INJECTION,***
     Dates: start: 20130628, end: 20130628
  2. LIDOCAINE [Concomitant]

REACTIONS (5)
  - Loss of consciousness [None]
  - Flushing [None]
  - Feeling abnormal [None]
  - Hypoaesthesia oral [None]
  - Hypersensitivity [None]
